FAERS Safety Report 23178988 (Version 2)
Quarter: 2023Q4

REPORT INFORMATION
  Report Type: Spontaneous
  Country: IN (occurrence: IN)
  Receive Date: 20231113
  Receipt Date: 20231130
  Transmission Date: 20240110
  Serious: Yes (Other)
  Sender: FDA-Public Use
  Company Number: IN-PFIZER INC-PV202200057619

PATIENT
  Age: 69 Year
  Sex: Female

DRUGS (3)
  1. LORLATINIB [Suspect]
     Active Substance: LORLATINIB
     Indication: Lung carcinoma cell type unspecified stage IV
     Dosage: 50 MG, 1X/DAY
     Route: 048
     Dates: start: 20220801
  2. LORLATINIB [Suspect]
     Active Substance: LORLATINIB
     Dosage: 100 MG
     Route: 048
     Dates: start: 20220801, end: 20220830
  3. LORLATINIB [Suspect]
     Active Substance: LORLATINIB
     Dosage: 50 MG, 1X/DAY
     Route: 048

REACTIONS (10)
  - Cerebral atrophy [Unknown]
  - Hepatomegaly [Unknown]
  - Blood glucose increased [Unknown]
  - Asthenia [Unknown]
  - Lymphadenopathy [Unknown]
  - Paranasal sinus mucosal hypertrophy [Unknown]
  - Thyroid atrophy [Unknown]
  - Hepatic steatosis [Unknown]
  - Extrarenal pelvis [Unknown]
  - Umbilical hernia [Unknown]

NARRATIVE: CASE EVENT DATE: 20231031
